FAERS Safety Report 8850279 (Version 1)
Quarter: 2012Q4

REPORT INFORMATION
  Report Type: 
  Country: AR (occurrence: AR)
  Receive Date: 20121019
  Receipt Date: 20121019
  Transmission Date: 20130627
  Serious: Yes (Hospitalization)
  Sender: FDA-Public Use
  Company Number: AR-ROCHE-1143106

PATIENT

DRUGS (8)
  1. TOCILIZUMAB [Suspect]
     Indication: JUVENILE ARTHRITIS
     Route: 042
  2. ETANERCEPT [Suspect]
     Indication: JUVENILE ARTHRITIS
     Route: 065
  3. INFLIXIMAB [Suspect]
     Indication: JUVENILE ARTHRITIS
     Route: 065
  4. ADALIMUMAB [Suspect]
     Indication: JUVENILE ARTHRITIS
     Route: 065
  5. ABATACEPT [Suspect]
     Indication: JUVENILE ARTHRITIS
     Route: 065
  6. ANAKINRA [Suspect]
     Indication: JUVENILE ARTHRITIS
     Route: 065
  7. METHOTREXATE [Concomitant]
     Indication: JUVENILE ARTHRITIS
     Route: 065
  8. PREDNISONE [Concomitant]
     Indication: JUVENILE ARTHRITIS

REACTIONS (5)
  - Blood disorder [Recovering/Resolving]
  - Anaphylactic reaction [Recovering/Resolving]
  - Herpes zoster [Recovering/Resolving]
  - Autoimmune disorder [Recovering/Resolving]
  - Histiocytosis haematophagic [Recovering/Resolving]
